FAERS Safety Report 19136675 (Version 1)
Quarter: 2021Q2

REPORT INFORMATION
  Report Type: Spontaneous
  Country: US (occurrence: US)
  Receive Date: 20210414
  Receipt Date: 20210414
  Transmission Date: 20210717
  Serious: Yes (Other)
  Sender: FDA-Public Use
  Company Number: US-BRACCO-2021US01401

PATIENT
  Age: 61 Year
  Sex: Male

DRUGS (14)
  1. LUMASON [Suspect]
     Active Substance: SULFUR HEXAFLUORIDE
     Indication: STRESS ECHOCARDIOGRAM
     Dosage: 0.5 ML, SINGLE
     Route: 042
     Dates: start: 20210325, end: 20210325
  2. DOBUTAMINE [Suspect]
     Active Substance: DOBUTAMINE HYDROCHLORIDE
     Indication: STRESS ECHOCARDIOGRAM
     Dosage: 5 ?G
     Route: 042
     Dates: start: 20210325, end: 20210325
  3. SALINE [SODIUM CHLORIDE] [Concomitant]
     Active Substance: SODIUM CHLORIDE
     Indication: ECHOCARDIOGRAM
     Dosage: 5 ML
     Route: 042
     Dates: start: 20210325, end: 20210325
  4. LUMASON [Suspect]
     Active Substance: SULFUR HEXAFLUORIDE
     Indication: ECHOCARDIOGRAM
     Dosage: 1 ML
     Route: 042
     Dates: start: 20210325, end: 20210325
  5. COZAAR [Concomitant]
     Active Substance: LOSARTAN POTASSIUM
  6. LUMASON [Suspect]
     Active Substance: SULFUR HEXAFLUORIDE
     Indication: ECHOCARDIOGRAM
     Dosage: 1 ML
     Route: 042
     Dates: start: 20210325, end: 20210325
  7. LIPITOR [Concomitant]
     Active Substance: ATORVASTATIN CALCIUM
  8. LUMASON [Suspect]
     Active Substance: SULFUR HEXAFLUORIDE
     Indication: STRESS ECHOCARDIOGRAM
     Dosage: 0.5 ML, SINGLE
     Route: 042
     Dates: start: 20210325, end: 20210325
  9. HUMALOG [Concomitant]
     Active Substance: INSULIN LISPRO
  10. LUMASON [Suspect]
     Active Substance: SULFUR HEXAFLUORIDE
     Indication: ECHOCARDIOGRAM
     Dosage: 1 ML
     Route: 042
     Dates: start: 20210325, end: 20210325
  11. LUMASON [Suspect]
     Active Substance: SULFUR HEXAFLUORIDE
     Indication: STRESS ECHOCARDIOGRAM
     Dosage: 0.5 ML, SINGLE
     Route: 042
     Dates: start: 20210325, end: 20210325
  12. ASPIRIN [ACETYLSALICYLIC ACID] [Concomitant]
     Active Substance: ASPIRIN
  13. PROCARDIA [Concomitant]
     Active Substance: NIFEDIPINE
  14. RENVELA [Concomitant]
     Active Substance: SEVELAMER CARBONATE

REACTIONS (2)
  - Unresponsive to stimuli [Recovered/Resolved]
  - Grunting [Recovered/Resolved]

NARRATIVE: CASE EVENT DATE: 20210325
